FAERS Safety Report 10029220 (Version 5)
Quarter: 2015Q2

REPORT INFORMATION
  Report Type: Spontaneous
  Country: US (occurrence: US)
  Receive Date: 20140321
  Receipt Date: 20150629
  Transmission Date: 20150821
  Serious: Yes (Hospitalization, Other)
  Sender: FDA-Public Use
  Company Number: US-SANOFI-AVENTIS-2012SA066459

PATIENT
  Age: 66 Year
  Sex: Female
  Weight: 98.43 kg

DRUGS (14)
  1. PLAVIX [Suspect]
     Active Substance: CLOPIDOGREL BISULFATE
     Indication: CARDIOVASCULAR DISORDER
     Route: 048
     Dates: start: 20071212, end: 20071224
  2. PLAVIX [Suspect]
     Active Substance: CLOPIDOGREL BISULFATE
     Indication: PROPHYLAXIS
     Route: 048
     Dates: start: 20071212, end: 20071224
  3. SIMVASTATIN. [Concomitant]
     Active Substance: SIMVASTATIN
     Indication: BLOOD CHOLESTEROL
  4. ASPIRIN. [Concomitant]
     Active Substance: ASPIRIN
  5. OMEPRAZOLE. [Concomitant]
     Active Substance: OMEPRAZOLE
  6. RANITIDINE [Concomitant]
     Active Substance: RANITIDINE\RANITIDINE HYDROCHLORIDE
  7. DILTIAZEM [Concomitant]
     Active Substance: DILTIAZEM
     Indication: BLOOD PRESSURE
  8. LEVEMIR [Concomitant]
     Active Substance: INSULIN DETEMIR
     Dosage: DOSE:65 UNIT(S)
  9. BUSPIRONE [Concomitant]
     Active Substance: BUSPIRONE HYDROCHLORIDE
     Indication: ANTIDEPRESSANT THERAPY
  10. COUMADIN [Concomitant]
     Active Substance: WARFARIN SODIUM
  11. FERROUS SULFATE [Concomitant]
     Active Substance: FERROUS SULFATE\FERROUS SULFATE, DRIED
  12. HUMALOG [Concomitant]
     Active Substance: INSULIN LISPRO
  13. CYMBALTA [Concomitant]
     Active Substance: DULOXETINE HYDROCHLORIDE
     Indication: ANTIDEPRESSANT THERAPY
     Dosage: DOSE:60 AND 30MG
  14. FLEXPEN [Concomitant]
     Active Substance: UNSPECIFIED INGREDIENT
     Dosage: FOR LEVEMIR

REACTIONS (8)
  - Blindness [Unknown]
  - Confusional state [Unknown]
  - Asthenia [Unknown]
  - Cerebrovascular accident [Unknown]
  - Amnesia [Unknown]
  - Thrombotic thrombocytopenic purpura [Unknown]
  - General physical health deterioration [Unknown]
  - Multiple injuries [Unknown]

NARRATIVE: CASE EVENT DATE: 20071224
